FAERS Safety Report 4531999-0 (Version None)
Quarter: 2004Q4

REPORT INFORMATION
  Report Type: 
  Country: None (occurrence: None)
  Receive Date: 20041217
  Receipt Date: 20041209
  Transmission Date: 20050328
  Serious: Yes (Hospitalization, Other)
  Sender: FDA-Public Use
  Company Number: HQWYE875509DEC04

PATIENT
  Age: 53 Year
  Sex: Female

DRUGS (6)
  1. EUPANTOL (PANTOPRAZOLE, TABLET, DELAYED RELEASE) [Suspect]
     Indication: PEPTIC ULCER
     Dosage: 40 MG 1X PER 1 DAY ORAL
     Route: 048
     Dates: start: 20040701, end: 20040714
  2. AMOXICILLIN TRIHYDRATE [Suspect]
     Indication: PEPTIC ULCER
     Dosage: ORAL
     Route: 048
     Dates: start: 20040701, end: 20040721
  3. CLARITHROMYCIN [Suspect]
     Indication: PEPTIC ULCER
     Dosage: ORAL
     Route: 048
     Dates: start: 20040701, end: 20040721
  4. PLAQUENIL [Suspect]
     Indication: RHEUMATOID ARTHRITIS
     Dosage: ORAL
     Route: 048
     Dates: start: 20040707, end: 20040709
  5. VOLTAREN [Concomitant]
  6. TRAMADOL HCL [Concomitant]

REACTIONS (2)
  - PRURITUS [None]
  - TOXIC SKIN ERUPTION [None]
